FAERS Safety Report 12262055 (Version 1)
Quarter: 2016Q2

REPORT INFORMATION
  Report Type: Spontaneous
  Country: FR (occurrence: FR)
  Receive Date: 20160413
  Receipt Date: 20160413
  Transmission Date: 20160815
  Serious: Yes (Other)
  Sender: FDA-Public Use
  Company Number: FR-009507513-1604FRA007125

PATIENT
  Age: 60 Year
  Sex: Female

DRUGS (2)
  1. DIPROSTENE [Suspect]
     Active Substance: BETAMETHASONE DIPROPIONATE\BETAMETHASONE SODIUM PHOSPHATE
     Indication: PAIN
     Dosage: UNK
     Dates: end: 20150909
  2. VICTAN [Concomitant]
     Active Substance: ETHYL LOFLAZEPATE

REACTIONS (2)
  - Flushing [Recovered/Resolved]
  - Cataract subcapsular [Recovered/Resolved with Sequelae]

NARRATIVE: CASE EVENT DATE: 201509
